FAERS Safety Report 6770550-1 (Version None)
Quarter: 2010Q2

REPORT INFORMATION
  Report Type: 
  Country: None (occurrence: None)
  Receive Date: 20100615
  Receipt Date: 20100603
  Transmission Date: 20101027
  Serious: Yes (Other)
  Sender: FDA-Public Use
  Company Number: PHHY2010CA36962

PATIENT
  Sex: Female

DRUGS (8)
  1. ACLASTA [Suspect]
     Indication: OSTEOPOROSIS
     Dosage: UNK
  2. ACLASTA [Suspect]
  3. ACLASTA [Suspect]
     Dosage: UNK
     Dates: start: 20100419
  4. LYRICA [Concomitant]
     Dosage: 75 MG
  5. TRAMADOL HCL [Concomitant]
  6. CARDIAZEM [Concomitant]
  7. VITAMIN C [Concomitant]
  8. MANDELAMINE [Concomitant]

REACTIONS (6)
  - APHONIA [None]
  - ASTHMA [None]
  - LARYNGITIS [None]
  - OEDEMA PERIPHERAL [None]
  - PAIN [None]
  - TENDERNESS [None]
